FAERS Safety Report 4314744-3 (Version None)
Quarter: 2004Q1

REPORT INFORMATION
  Report Type: 
  Country: None (occurrence: None)
  Receive Date: 20040309
  Receipt Date: 20040309
  Transmission Date: 20041129
  Serious: Yes (Hospitalization)
  Sender: FDA-Public Use
  Company Number: None

PATIENT
  Sex: Female
  Weight: 91.6266 kg

DRUGS (2)
  1. FLUOROURACIL [Suspect]
     Indication: ANAL CANCER
     Dosage: 477.5 MG IV CONT.CAD
     Dates: start: 20040225, end: 20040228
  2. MITOMYCIN-C BULK POWDER [Suspect]
     Indication: ANAL CANCER
     Dosage: 19 MG IV
     Route: 042
     Dates: start: 20040225

REACTIONS (5)
  - ABDOMINAL PAIN [None]
  - DEHYDRATION [None]
  - NAUSEA [None]
  - PYREXIA [None]
  - VOMITING [None]
